FAERS Safety Report 8120967-8 (Version None)
Quarter: 2011Q4

REPORT INFORMATION
  Report Type: 
  Country: None (occurrence: None)
  Receive Date: 20111227
  Receipt Date: 20111012
  Transmission Date: 20120403
  Serious: No
  Sender: FDA-Public Use
  Company Number: PHHY2011US37949

PATIENT
  Age: 51 Year
  Sex: Female
  Weight: 115.6 kg

DRUGS (5)
  1. VOLTAREN (DICLOFENAC DIETHYLAMINE) [Concomitant]
  2. GILENYA [Suspect]
     Indication: MULTIPLE SCLEROSIS
     Dosage: 0.5 MG, QD, ORAL
     Route: 048
     Dates: start: 20110103, end: 20110330
  3. LISINOPRIL [Concomitant]
  4. DIOVAN [Concomitant]
  5. GABAPENTIN [Concomitant]

REACTIONS (4)
  - SENSATION OF FOREIGN BODY [None]
  - NAUSEA [None]
  - AGITATION [None]
  - TREMOR [None]
